FAERS Safety Report 19888424 (Version 1)
Quarter: 2021Q3

REPORT INFORMATION
  Report Type: Spontaneous
  Country: US (occurrence: US)
  Receive Date: 20210927
  Receipt Date: 20210927
  Transmission Date: 20211014
  Serious: Yes (Hospitalization)
  Sender: FDA-Public Use
  Company Number: None

PATIENT
  Age: 77 Year
  Sex: Female

DRUGS (1)
  1. AMBRISENTAN 10MG TABLETS 30/BO: 10MG [Suspect]
     Active Substance: AMBRISENTAN
     Indication: PULMONARY ARTERIAL HYPERTENSION
     Route: 048
     Dates: start: 20141017

REACTIONS (7)
  - Presyncope [None]
  - Dysarthria [None]
  - Dehydration [None]
  - Encephalopathy [None]
  - Hypotension [None]
  - Balance disorder [None]
  - Blood urea abnormal [None]

NARRATIVE: CASE EVENT DATE: 20210905
